FAERS Safety Report 16957607 (Version 10)
Quarter: 2021Q2

REPORT INFORMATION
  Report Type: Other
  Country: DE (occurrence: DE)
  Receive Date: 20191024
  Receipt Date: 20210610
  Transmission Date: 20210716
  Serious: Yes (Other)
  Sender: FDA-Public Use
  Company Number: DE-ROCHE-2385886

PATIENT
  Age: 40 Year
  Sex: Female

DRUGS (18)
  1. BETMIGA [Concomitant]
     Active Substance: MIRABEGRON
  2. PYOLYSIN [Concomitant]
     Indication: WOUND
  3. HEPATITIS B VACCINE [Suspect]
     Active Substance: HEPATITIS B VIRUS VACCINE
     Indication: PRODUCT USED FOR UNKNOWN INDICATION
     Route: 065
  4. PFIZER?BIONTECH COVID?19 VACCINE [Suspect]
     Active Substance: TOZINAMERAN
     Indication: PRODUCT USED FOR UNKNOWN INDICATION
     Dosage: SECOND VACCINATION
     Route: 065
     Dates: start: 20210525
  5. URIVESC [Concomitant]
     Active Substance: TROSPIUM CHLORIDE
  6. OCREVUS [Suspect]
     Active Substance: OCRELIZUMAB
     Route: 042
     Dates: start: 20200907
  7. THYROX [Concomitant]
  8. L?THYROX [Concomitant]
     Active Substance: LEVOTHYROXINE SODIUM
  9. METHYLSULFONYLMETHANE [Concomitant]
     Active Substance: DIMETHYL SULFONE
  10. BEDROCAN [Concomitant]
     Active Substance: .DELTA.8-TETRAHYDROCANNABINOL\HERBALS
  11. OCREVUS [Suspect]
     Active Substance: OCRELIZUMAB
     Indication: RELAPSING-REMITTING MULTIPLE SCLEROSIS
     Dosage: DATE OF TREATMENT: 07/SEP/2020
     Route: 042
     Dates: start: 20200305
  12. ACICLOVIR [Suspect]
     Active Substance: ACYCLOVIR
     Indication: PRODUCT USED FOR UNKNOWN INDICATION
     Route: 065
  13. ATOSIL [Concomitant]
  14. DULOXETINE. [Concomitant]
     Active Substance: DULOXETINE
  15. OCREVUS [Suspect]
     Active Substance: OCRELIZUMAB
     Indication: PRIMARY PROGRESSIVE MULTIPLE SCLEROSIS
     Route: 042
     Dates: start: 20190806
  16. ESCITALOPRAM [Concomitant]
     Active Substance: ESCITALOPRAM OXALATE
  17. SELENASE [Concomitant]
  18. CORTISONE [Concomitant]
     Active Substance: CORTISONE
     Indication: PREMEDICATION
     Dates: start: 20200305, end: 20200305

REACTIONS (17)
  - Prurigo [Not Recovered/Not Resolved]
  - Hypoaesthesia [Not Recovered/Not Resolved]
  - Urinary incontinence [Not Recovered/Not Resolved]
  - Dermatitis allergic [Unknown]
  - B-lymphocyte count increased [Recovered/Resolved]
  - Hypersensitivity [Not Recovered/Not Resolved]
  - Hot flush [Not Recovered/Not Resolved]
  - Multiple sclerosis [Not Recovered/Not Resolved]
  - Skin odour abnormal [Recovered/Resolved]
  - Genital herpes [Recovered/Resolved]
  - Alopecia [Recovered/Resolved]
  - Rhinorrhoea [Not Recovered/Not Resolved]
  - Burning sensation [Not Recovered/Not Resolved]
  - Sciatica [Not Recovered/Not Resolved]
  - Reaction to excipient [Not Recovered/Not Resolved]
  - Dry skin [Recovered/Resolved]
  - Genital tract inflammation [Not Recovered/Not Resolved]

NARRATIVE: CASE EVENT DATE: 20190806
